FAERS Safety Report 11230137 (Version 2)
Quarter: 2016Q1

REPORT INFORMATION
  Report Type: Spontaneous
  Country: CA (occurrence: CA)
  Receive Date: 20150701
  Receipt Date: 20160325
  Transmission Date: 20160525
  Serious: Yes (Other)
  Sender: FDA-Public Use
  Company Number: CA-ROCHE-1601914

PATIENT
  Age: 70 Year
  Sex: Female

DRUGS (6)
  1. QVAR [Concomitant]
     Active Substance: BECLOMETHASONE DIPROPIONATE
  2. SPIRIVA [Concomitant]
     Active Substance: TIOTROPIUM BROMIDE MONOHYDRATE
  3. XOLAIR [Suspect]
     Active Substance: OMALIZUMAB
     Indication: ASTHMA
     Route: 058
     Dates: start: 20140115
  4. VENTOLIN [Concomitant]
     Active Substance: ALBUTEROL SULFATE
     Dosage: 2 PUFFS WITH SPACER
     Route: 065
  5. ADVAIR HFA [Concomitant]
     Active Substance: FLUTICASONE PROPIONATE\SALMETEROL XINAFOATE
  6. APO-SALVENT [Concomitant]
     Active Substance: ALBUTEROL

REACTIONS (10)
  - Bronchospasm [Unknown]
  - Vital capacity decreased [Unknown]
  - Forced expiratory volume decreased [Unknown]
  - Obstructive airways disorder [Unknown]
  - Forced vital capacity decreased [Unknown]
  - Urticaria [Unknown]
  - Malaise [Unknown]
  - Hypoventilation [Unknown]
  - Nasopharyngitis [Unknown]
  - Pulmonary function test decreased [Unknown]

NARRATIVE: CASE EVENT DATE: 20141118
